FAERS Safety Report 14523752 (Version 3)
Quarter: 2018Q3

REPORT INFORMATION
  Report Type: Report from Study
  Country: US (occurrence: US)
  Receive Date: 20180213
  Receipt Date: 20180825
  Transmission Date: 20181010
  Serious: No
  Sender: FDA-Public Use
  Company Number: PHEH2018US005054

PATIENT
  Sex: Male
  Weight: 97.51 kg

DRUGS (2)
  1. COSENTYX [Suspect]
     Active Substance: SECUKINUMAB
     Indication: PSORIATIC ARTHROPATHY
     Dosage: 150 MG, QMO
     Route: 058
  2. COSENTYX [Suspect]
     Active Substance: SECUKINUMAB
     Dosage: 300 MG, QMO
     Route: 058
     Dates: start: 201801

REACTIONS (6)
  - Psoriasis [Unknown]
  - Hypothyroidism [Unknown]
  - Stress [Unknown]
  - Therapeutic response shortened [Unknown]
  - Body temperature fluctuation [Unknown]
  - Inappropriate schedule of drug administration [Unknown]
